FAERS Safety Report 19278349 (Version 2)
Quarter: 2021Q2

REPORT INFORMATION
  Report Type: Spontaneous
  Country: FR (occurrence: FR)
  Receive Date: 20210520
  Receipt Date: 20210624
  Transmission Date: 20210717
  Serious: Yes (Other)
  Sender: FDA-Public Use
  Company Number: FR-SA-2021SA158779

PATIENT
  Age: 73 Year
  Sex: Female

DRUGS (6)
  1. SULFASALAZINE. [Concomitant]
     Active Substance: SULFASALAZINE
     Indication: PSORIATIC ARTHROPATHY
  2. ETANERCEPT [Concomitant]
     Active Substance: ETANERCEPT
     Indication: PSORIATIC ARTHROPATHY
  3. METHOTREXATE. [Concomitant]
     Active Substance: METHOTREXATE
     Indication: PSORIATIC ARTHROPATHY
  4. PREDNISONE. [Concomitant]
     Active Substance: PREDNISONE
     Dosage: 35 UNK
  5. LEFLUNOMIDE. [Suspect]
     Active Substance: LEFLUNOMIDE
     Indication: PSORIATIC ARTHROPATHY
     Dosage: 20 MG, QD
     Dates: start: 200402
  6. PREDNISONE. [Concomitant]
     Active Substance: PREDNISONE
     Indication: PSORIATIC ARTHROPATHY
     Dosage: 7 MG, QD
     Dates: start: 200402

REACTIONS (8)
  - Ulcer [Recovered/Resolved]
  - Soft tissue necrosis [Recovered/Resolved]
  - Skin lesion [Recovered/Resolved]
  - Disease progression [Recovered/Resolved]
  - Gastric ulcer [Recovered/Resolved]
  - Skin necrosis [Recovered/Resolved]
  - Skin plaque [Recovered/Resolved]
  - Vasculitis [Unknown]
